FAERS Safety Report 10198719 (Version 1)
Quarter: 2014Q2

REPORT INFORMATION
  Report Type: Spontaneous
  Country: US (occurrence: US)
  Receive Date: 20140527
  Receipt Date: 20140527
  Transmission Date: 20141212
  Serious: No
  Sender: FDA-Public Use
  Company Number: US-NOVEN-13US007993

PATIENT
  Sex: Male

DRUGS (2)
  1. DAYTRANA [Suspect]
     Indication: APATHY
     Dosage: 10 MG, UNK
     Route: 062
     Dates: start: 2013
  2. METHYLPHENIDATE [Concomitant]
     Indication: PROPHYLAXIS
     Dosage: 2.5 MG, UNK
     Route: 048

REACTIONS (3)
  - Drug prescribing error [Not Recovered/Not Resolved]
  - Drug dose omission [Not Recovered/Not Resolved]
  - No adverse event [Unknown]
